FAERS Safety Report 19900753 (Version 1)
Quarter: 2021Q3

REPORT INFORMATION
  Report Type: Spontaneous
  Country: US (occurrence: US)
  Receive Date: 20210929
  Receipt Date: 20210929
  Transmission Date: 20211014
  Serious: Yes (Other)
  Sender: FDA-Public Use
  Company Number: US-MALLINCKRODT PHARMACEUTICALS-T202103349

PATIENT
  Age: 55 Year
  Sex: Female
  Weight: 78 kg

DRUGS (4)
  1. H.P. ACTHAR [Suspect]
     Active Substance: CORTICOTROPIN
     Indication: NEPHRITIC SYNDROME
  2. H.P. ACTHAR [Suspect]
     Active Substance: CORTICOTROPIN
     Indication: OSTEOARTHRITIS
     Dosage: 1 MILLILITER (80 UNITS), BIW
     Route: 058
     Dates: start: 20210715
  3. H.P. ACTHAR [Suspect]
     Active Substance: CORTICOTROPIN
     Indication: SYSTEMIC LUPUS ERYTHEMATOSUS
  4. H.P. ACTHAR [Suspect]
     Active Substance: CORTICOTROPIN
     Indication: BLADDER DISORDER

REACTIONS (5)
  - Rheumatoid arthritis [Unknown]
  - Therapeutic response shortened [Not Recovered/Not Resolved]
  - Feeling abnormal [Not Recovered/Not Resolved]
  - Hyperhidrosis [Not Recovered/Not Resolved]
  - Product use in unapproved indication [Not Recovered/Not Resolved]

NARRATIVE: CASE EVENT DATE: 2021
